FAERS Safety Report 16569700 (Version 1)
Quarter: 2019Q3

REPORT INFORMATION
  Report Type: Spontaneous
  Country: US (occurrence: US)
  Receive Date: 20190715
  Receipt Date: 20190715
  Transmission Date: 20191004
  Serious: Yes (Other)
  Sender: FDA-Public Use
  Company Number: US-ROCHE-2353953

PATIENT
  Sex: Female

DRUGS (14)
  1. DIPHENOXYLATE/ATROPINE [Concomitant]
     Active Substance: ATROPINE\DIPHENOXYLATE
  2. EPIPEN [Concomitant]
     Active Substance: EPINEPHRINE
  3. LEVOCETIRIZINE [Concomitant]
     Active Substance: LEVOCETIRIZINE
  4. LATANOPROST. [Concomitant]
     Active Substance: LATANOPROST
  5. OFLOXACIN. [Concomitant]
     Active Substance: OFLOXACIN
  6. LIDODERM [Concomitant]
     Active Substance: LIDOCAINE
  7. XOLAIR [Suspect]
     Active Substance: OMALIZUMAB
     Indication: RHEUMATOID ARTHRITIS
     Route: 058
  8. TIMOLOL MALEATE. [Concomitant]
     Active Substance: TIMOLOL MALEATE
  9. AMLODIPINE BESYLATE. [Concomitant]
     Active Substance: AMLODIPINE BESYLATE
  10. ALLOPURINOL. [Concomitant]
     Active Substance: ALLOPURINOL
  11. EPINEPHRINE. [Concomitant]
     Active Substance: EPINEPHRINE
  12. NORVASC [Concomitant]
     Active Substance: AMLODIPINE BESYLATE
  13. RANITIDINE HCL [Concomitant]
     Active Substance: RANITIDINE HYDROCHLORIDE
  14. TRAMADOL HCL [Concomitant]
     Active Substance: TRAMADOL HYDROCHLORIDE

REACTIONS (2)
  - Product dose omission [Unknown]
  - Pneumonia [Unknown]
